FAERS Safety Report 7371890-8 (Version None)
Quarter: 2011Q1

REPORT INFORMATION
  Report Type: 
  Country: None (occurrence: None)
  Receive Date: 20110322
  Receipt Date: 20110322
  Transmission Date: 20110831
  Serious: Yes (Death)
  Sender: FDA-Public Use
  Company Number: None

PATIENT
  Age: 28 Year
  Sex: Female
  Weight: 93 kg

DRUGS (15)
  1. IBUPROFEN [Concomitant]
  2. VANCOMYCIN [Concomitant]
  3. LACTULOSE [Concomitant]
  4. ACETYLCYSTEINE [Concomitant]
  5. ONDANSETRON [Concomitant]
  6. VITAMIN K TAB [Concomitant]
  7. TRAMADOL [Concomitant]
  8. ACETAMINOPHEN [Concomitant]
  9. FAMOTIDINE [Concomitant]
  10. PIPERACILLIN AND TAZOBACTAM [Concomitant]
  11. NATALIZUMAB -TYSABRI- 300 MG ELAN PHARMACEUTICALS [Suspect]
     Indication: MULTIPLE SCLEROSIS
     Dosage: 300 MG EVERY 4 WEEKS IV
     Route: 042
  12. MAALOX [Concomitant]
  13. BARIUM SULFATE CONTRAST [Concomitant]
  14. ENTECAVIR [Concomitant]
  15. OCTREOTIDE ACETATE [Concomitant]

REACTIONS (12)
  - HEPATITIS B [None]
  - PAIN [None]
  - PYREXIA [None]
  - CYTOMEGALOVIRUS INFECTION [None]
  - HIV INFECTION [None]
  - NAUSEA [None]
  - ENCEPHALOPATHY [None]
  - ASTHENIA [None]
  - ABDOMINAL PAIN [None]
  - HEPATIC FAILURE [None]
  - BRADYCARDIA [None]
  - REFUSAL OF TREATMENT BY PATIENT [None]
